FAERS Safety Report 22081941 (Version 1)
Quarter: 2023Q1

REPORT INFORMATION
  Report Type: Report from Study
  Country: ES (occurrence: ES)
  Receive Date: 20230310
  Receipt Date: 20230310
  Transmission Date: 20230417
  Serious: Yes (Hospitalization, Other)
  Sender: FDA-Public Use
  Company Number: ES-ABBVIE-4276844

PATIENT
  Age: 77 Year
  Sex: Female

DRUGS (4)
  1. CARBIDOPA\LEVODOPA [Suspect]
     Active Substance: CARBIDOPA\LEVODOPA
     Indication: Parkinson^s disease
     Dosage: CONTINUOUS INFUSION PUMP^S CONTINUOUS DOSE DECREASED
     Route: 050
     Dates: start: 202301
  2. CARBIDOPA\LEVODOPA [Suspect]
     Active Substance: CARBIDOPA\LEVODOPA
     Route: 050
     Dates: start: 20221117, end: 202301
  3. NEUPRO [Concomitant]
     Active Substance: ROTIGOTINE
     Indication: Product used for unknown indication
     Route: 065
     Dates: start: 20230209
  4. NEUPRO [Concomitant]
     Active Substance: ROTIGOTINE
     Indication: Product used for unknown indication
     Route: 065
     Dates: start: 20230212

REACTIONS (6)
  - Embedded device [Recovered/Resolved]
  - Dyskinesia [Recovering/Resolving]
  - Stoma site erythema [Unknown]
  - On and off phenomenon [Unknown]
  - Stoma site discharge [Unknown]
  - Stoma site irritation [Recovering/Resolving]

NARRATIVE: CASE EVENT DATE: 20230101
